FAERS Safety Report 23045923 (Version 2)
Quarter: 2023Q4

REPORT INFORMATION
  Report Type: Spontaneous
  Country: FR (occurrence: FR)
  Receive Date: 20231009
  Receipt Date: 20231016
  Transmission Date: 20240110
  Serious: Yes (Other)
  Sender: FDA-Public Use
  Company Number: FR-AMERICAN REGENT INC-20140768

PATIENT
  Age: 63 Year
  Sex: Male
  Weight: 97.3 kg

DRUGS (5)
  1. VENOFER [Suspect]
     Active Substance: IRON SUCROSE
     Indication: Product used for unknown indication
     Dosage: 200 MG,1 IN 1 TOTAL
     Dates: start: 20140919, end: 20140919
  2. MANIDIPINE [Concomitant]
     Active Substance: MANIDIPINE
     Indication: Product used for unknown indication
     Dosage: 10 MG IN THE EVENING (1 IN 1 D)
     Route: 065
  3. DOLIPRANE [Concomitant]
     Active Substance: ACETAMINOPHEN
     Indication: Product used for unknown indication
     Dosage: 1 GRAM, PRN (AS REQUIRED)
     Route: 065
  4. CHOLECALCIFEROL [Concomitant]
     Active Substance: CHOLECALCIFEROL
     Indication: Product used for unknown indication
     Dosage: 1 IN 3 M (AMPOULES)
     Route: 065
  5. AZARGA [Concomitant]
     Active Substance: BRINZOLAMIDE\TIMOLOL MALEATE
     Indication: Product used for unknown indication
     Dosage: 2 IN 1 D
     Route: 065

REACTIONS (12)
  - Blood lactic acid increased [Unknown]
  - Diverticulum intestinal [Unknown]
  - Eye movement disorder [Recovered/Resolved]
  - Pallor [Recovered/Resolved]
  - Paraesthesia [Recovered/Resolved]
  - Paraesthesia oral [Recovered/Resolved]
  - Hyperhidrosis [Recovered/Resolved]
  - Loss of consciousness [Recovered/Resolved]
  - Hypotension [Recovered/Resolved]
  - Vomiting [Recovered/Resolved]
  - Nausea [Recovered/Resolved]
  - Incorrect drug administration rate [Unknown]

NARRATIVE: CASE EVENT DATE: 20140919
